FAERS Safety Report 9173653 (Version 1)
Quarter: 2013Q1

REPORT INFORMATION
  Report Type: Report from Study
  Country: CA (occurrence: CA)
  Receive Date: 20130320
  Receipt Date: 20130320
  Transmission Date: 20140127
  Serious: Yes (Other)
  Sender: FDA-Public Use
  Company Number: CA-JNJFOC-20130306193

PATIENT
  Sex: Female
  Weight: 46.2 kg

DRUGS (12)
  1. REMICADE [Suspect]
     Indication: CROHN^S DISEASE
     Route: 042
     Dates: start: 20120427
  2. OXYCODONE [Concomitant]
     Route: 065
  3. PENTASA [Concomitant]
     Route: 065
  4. CIPROLEX [Concomitant]
     Route: 065
  5. MULTIVITAMIN [Concomitant]
     Route: 065
  6. IMURAN [Concomitant]
     Route: 065
  7. CALCIUM [Concomitant]
     Route: 065
  8. ACTONEL [Concomitant]
     Route: 065
  9. MAGNESIUM [Concomitant]
     Route: 065
  10. ENTOCORT [Concomitant]
     Route: 065
  11. VITAMIN D3 [Concomitant]
     Route: 065
  12. WARFARIN [Concomitant]
     Route: 065

REACTIONS (1)
  - Fungal infection [Unknown]
